FAERS Safety Report 25086188 (Version 10)
Quarter: 2025Q4

REPORT INFORMATION
  Report Type: Report from Study
  Country: US (occurrence: None)
  Receive Date: 20250317
  Receipt Date: 20251106
  Transmission Date: 20260118
  Serious: Yes (Hospitalization, Other)
  Sender: UCB
  Company Number: US-UCBSA-2025014089

PATIENT
  Age: 15 Month
  Weight: 12.2 kg

DRUGS (9)
  1. FENFLURAMINE [Suspect]
     Active Substance: FENFLURAMINE
     Indication: Lennox-Gastaut syndrome
     Dosage: 1 MILLILITER, 2X/DAY (BID)
  2. FENFLURAMINE [Suspect]
     Active Substance: FENFLURAMINE
     Dosage: 1 MILLILITER, 2X/DAY (BID)
  3. FENFLURAMINE [Suspect]
     Active Substance: FENFLURAMINE
     Dosage: 1 ML QAM + 2.2 ML QPM
  4. FENFLURAMINE [Suspect]
     Active Substance: FENFLURAMINE
     Dosage: 1 ML QAM + 2.2 ML QPM
  5. FENFLURAMINE [Suspect]
     Active Substance: FENFLURAMINE
     Dosage: 15.4 MILLIGRAM PER DAY
  6. FENFLURAMINE [Suspect]
     Active Substance: FENFLURAMINE
     Dosage: 1 ML QAM + 2.2 ML QPM
  7. FENFLURAMINE [Suspect]
     Active Substance: FENFLURAMINE
     Dosage: 1ML PO QAM AND 2.2ML PO QPM
  8. FENFLURAMINE [Suspect]
     Active Substance: FENFLURAMINE
     Dosage: 1ML PO QAM AND 2.2ML PO QPM
  9. FENFLURAMINE [Suspect]
     Active Substance: FENFLURAMINE
     Dosage: 1 ML QAM AND 2.2 ML QPM

REACTIONS (14)
  - Bronchiolitis [Not Recovered/Not Resolved]
  - Decreased appetite [Not Recovered/Not Resolved]
  - Enteral nutrition [Not Recovered/Not Resolved]
  - Hospitalisation [Not Recovered/Not Resolved]
  - Cerebral disorder [Not Recovered/Not Resolved]
  - Pneumonia [Not Recovered/Not Resolved]
  - Seizure [Not Recovered/Not Resolved]
  - Respiratory failure [Recovered/Resolved]
  - Brain operation [Recovered/Resolved]
  - Endotracheal intubation [Recovering/Resolving]
  - Sedation [Not Recovered/Not Resolved]
  - Off label use [Unknown]
  - Product use issue [Unknown]
  - Drug ineffective [Unknown]
